FAERS Safety Report 5973040-9 (Version None)
Quarter: 2008Q4

REPORT INFORMATION
  Report Type: 
  Country: None (occurrence: None)
  Receive Date: 20081126
  Receipt Date: 20081126
  Transmission Date: 20090506
  Serious: Yes (Other)
  Sender: FDA-Public Use
  Company Number: None

PATIENT
  Age: 82 Year
  Sex: Male
  Weight: 72.5755 kg

DRUGS (1)
  1. LEVAQUIN [Suspect]
     Indication: PROPHYLAXIS
     Dosage: 500MG/TABLET DAILY PO
     Route: 048
     Dates: start: 20081119, end: 20081122

REACTIONS (2)
  - GAIT DISTURBANCE [None]
  - TENDONITIS [None]
